FAERS Safety Report 4763435-3 (Version None)
Quarter: 2005Q3

REPORT INFORMATION
  Report Type: 
  Country: None (occurrence: None)
  Receive Date: 20050908
  Receipt Date: 20050824
  Transmission Date: 20060218
  Serious: Yes (Hospitalization)
  Sender: FDA-Public Use
  Company Number: US-AMGEN-US148005

PATIENT
  Age: 79 Year
  Sex: Male
  Weight: 79.5 kg

DRUGS (4)
  1. PROCRIT [Suspect]
     Indication: RENAL FAILURE CHRONIC
     Route: 058
     Dates: end: 20050818
  2. AVANDIA [Concomitant]
  3. IRON [Concomitant]
  4. ASPIRIN [Concomitant]

REACTIONS (4)
  - CARDIAC PACEMAKER INSERTION [None]
  - DIZZINESS [None]
  - HAEMOGLOBIN DECREASED [None]
  - HEART RATE DECREASED [None]
